FAERS Safety Report 9516542 (Version 1)
Quarter: 2013Q3

REPORT INFORMATION
  Report Type: Spontaneous
  Country: US (occurrence: None)
  Receive Date: 20130910
  Receipt Date: 20130910
  Transmission Date: 20140515
  Serious: Yes (Death)
  Sender: FDA-Public Use
  Company Number: None

PATIENT
  Age: 31 Year
  Sex: Male

DRUGS (8)
  1. ZYPREXA RELPREVV [Suspect]
     Indication: SCHIZOAFFECTIVE DISORDER
     Route: 030
     Dates: start: 20130522
  2. ZYPREXA RELPREVV [Suspect]
     Indication: MYOCARDIAL INFARCTION
     Route: 030
     Dates: start: 20130522
  3. LITHIUM [Concomitant]
  4. PROLIXIN [Concomitant]
  5. PROZAC [Concomitant]
  6. SEROQUEL [Concomitant]
  7. TEGRETOL [Concomitant]
  8. VISTARIL [Concomitant]

REACTIONS (1)
  - Alcohol poisoning [None]
